FAERS Safety Report 16586932 (Version 1)
Quarter: 2019Q3

REPORT INFORMATION
  Report Type: Spontaneous
  Country: IL (occurrence: IL)
  Receive Date: 20190717
  Receipt Date: 20190717
  Transmission Date: 20191004
  Serious: Yes (Death, Other)
  Sender: FDA-Public Use
  Company Number: IL-CELGENEUS-ISR-20190705593

PATIENT
  Age: 67 Year
  Sex: Male

DRUGS (1)
  1. ISTODAX [Suspect]
     Active Substance: ROMIDEPSIN
     Indication: PERIPHERAL T-CELL LYMPHOMA UNSPECIFIED
     Route: 065
     Dates: start: 2019, end: 2019

REACTIONS (4)
  - Thrombocytopenia [Unknown]
  - Pneumonia [Fatal]
  - Drug ineffective [Unknown]
  - Leukopenia [Unknown]

NARRATIVE: CASE EVENT DATE: 2019
